FAERS Safety Report 22161119 (Version 2)
Quarter: 2023Q2

REPORT INFORMATION
  Report Type: Spontaneous
  Country: NO (occurrence: NO)
  Receive Date: 20230331
  Receipt Date: 20230410
  Transmission Date: 20230721
  Serious: Yes (Hospitalization, Other)
  Sender: FDA-Public Use
  Company Number: None

PATIENT
  Sex: Female
  Weight: 112 kg

DRUGS (2)
  1. ABILIFY MAINTENA [Suspect]
     Active Substance: ARIPIPRAZOLE
     Indication: Psychotic disorder
     Dosage: 1X800ML INITIATED THEN 1X400ML EVERY THIRD MONTH
     Route: 065
     Dates: end: 202208
  2. ABILIFY MAINTENA [Suspect]
     Active Substance: ARIPIPRAZOLE
     Indication: Involuntary commitment

REACTIONS (12)
  - Cerebral lobotomy [Recovering/Resolving]
  - Generalised oedema [Recovering/Resolving]
  - Overweight [Recovering/Resolving]
  - Rash [Recovering/Resolving]
  - Rash [Not Recovered/Not Resolved]
  - Fatigue [Recovering/Resolving]
  - Suicidal ideation [Recovering/Resolving]
  - Alopecia [Recovering/Resolving]
  - Hypersensitivity [Unknown]
  - Weight increased [Recovering/Resolving]
  - Dysphagia [Recovering/Resolving]
  - Product use in unapproved indication [Unknown]

NARRATIVE: CASE EVENT DATE: 20100101
